FAERS Safety Report 18009015 (Version 1)
Quarter: 2020Q3

REPORT INFORMATION
  Report Type: Spontaneous
  Country: US (occurrence: US)
  Receive Date: 20200710
  Receipt Date: 20200710
  Transmission Date: 20201103
  Serious: Yes (Hospitalization)
  Sender: FDA-Public Use
  Company Number: US-SAOL THERAPEUTICS-2020SAO00157

PATIENT
  Age: 36 Year
  Sex: Female
  Weight: 45.35 kg

DRUGS (13)
  1. KEPPRA [Concomitant]
     Active Substance: LEVETIRACETAM
     Dosage: 750 MG, 2X/DAY
     Route: 048
  2. LIORESAL [Suspect]
     Active Substance: BACLOFEN
     Dosage: UNK
  3. PATADAY [Concomitant]
     Active Substance: OLOPATADINE HYDROCHLORIDE
     Dosage: 1 GTT INTO BOTH EYES, 1X/DAY
  4. MEGESTROL [Concomitant]
     Active Substance: MEGESTROL
     Dosage: 5 ML, 1X/DAY AS NEEDED
     Route: 048
  5. DIASTAT [Concomitant]
     Active Substance: DIAZEPAM
     Dosage: 2.5 MG, AS DIRECTED; ADMINISTER PER RECTUM AT ONSET OF SEIZURE OR ADMINISTER 2X/DAY UNTIL ABLE TO SA
     Route: 054
  6. LIORESAL [Suspect]
     Active Substance: BACLOFEN
     Indication: MUSCLE SPASTICITY
     Dosage: 930 ?G, \DAY
     Route: 037
     Dates: start: 2000
  7. NORCO [Concomitant]
     Active Substance: ACETAMINOPHEN\HYDROCODONE BITARTRATE
     Dosage: 1 TABLETS, UP TO 6X/DAY (EVERY FOUR HOURS) AS NEEDED FOR PAIN
     Route: 048
  8. DULOXETINE. [Concomitant]
     Active Substance: DULOXETINE
     Dosage: 90 MG 1X/DAY
     Route: 048
  9. MONTELUKAST [Concomitant]
     Active Substance: MONTELUKAST SODIUM
     Dosage: 10 MG, 1X/DAY AT BEDTIME
     Route: 048
  10. OLANZAPINE. [Concomitant]
     Active Substance: OLANZAPINE
     Dosage: 5 MG, 1X/DAY
     Route: 048
  11. HYDROCORTISONE. [Concomitant]
     Active Substance: HYDROCORTISONE
  12. ESCITALOPRAM OXALATE. [Concomitant]
     Active Substance: ESCITALOPRAM OXALATE
     Dosage: 10 MG, 1X/DAY
     Route: 048
  13. IPRATROPIUM BROMIDE. [Concomitant]
     Active Substance: IPRATROPIUM BROMIDE
     Dosage: 2 SPRAYS, 1X/DAY INTO BOTH NOSTRILS
     Route: 045

REACTIONS (3)
  - Implant site erosion [Unknown]
  - Implant site infection [Unknown]
  - Pseudomonas infection [Unknown]

NARRATIVE: CASE EVENT DATE: 20200526
